FAERS Safety Report 26073421 (Version 1)
Quarter: 2025Q4

REPORT INFORMATION
  Report Type: Report from Study
  Country: US (occurrence: US)
  Receive Date: 20251121
  Receipt Date: 20251121
  Transmission Date: 20260118
  Serious: Yes (Hospitalization)
  Sender: ROCHE
  Company Number: US-ROCHE-10000422304

PATIENT
  Age: 58 Year
  Sex: Male
  Weight: 63.96 kg

DRUGS (13)
  1. TECENTRIQ HYBREZA [Suspect]
     Active Substance: ATEZOLIZUMAB\HYALURONIDASE-TQJS
     Indication: Pancreatic carcinoma
     Route: 042
  2. TECENTRIQ HYBREZA [Suspect]
     Active Substance: ATEZOLIZUMAB\HYALURONIDASE-TQJS
     Route: 058
     Dates: start: 20251024
  3. RITUXAN [Suspect]
     Active Substance: RITUXIMAB
     Indication: Product used for unknown indication
     Route: 042
  4. AVASTIN [Suspect]
     Active Substance: BEVACIZUMAB
     Indication: Product used for unknown indication
     Route: 042
  5. CARBOPLATIN [Concomitant]
     Active Substance: CARBOPLATIN
  6. DECADRON [Concomitant]
     Active Substance: DEXAMETHASONE
  7. TOPOSAR [Concomitant]
     Active Substance: ETOPOSIDE
  8. EMEND [Concomitant]
     Active Substance: APREPITANT
  9. ALOXI [Concomitant]
     Active Substance: PALONOSETRON HYDROCHLORIDE
  10. TESSALON [Concomitant]
     Active Substance: BENZONATATE
  11. GUAIFENESIN [Concomitant]
     Active Substance: GUAIFENESIN
  12. HEPARIN [Concomitant]
     Active Substance: HEPARIN SODIUM
  13. NPLATE [Concomitant]
     Active Substance: ROMIPLOSTIM

REACTIONS (2)
  - Off label use [Unknown]
  - Fatigue [Unknown]
